FAERS Safety Report 10026236 (Version 2)
Quarter: 2014Q1

REPORT INFORMATION
  Report Type: Spontaneous
  Country: US (occurrence: US)
  Receive Date: 20140320
  Receipt Date: 20140320
  Transmission Date: 20141002
  Serious: Yes (Hospitalization)
  Sender: FDA-Public Use
  Company Number: US-ALLERGAN-1316159US

PATIENT
  Age: 66 Year
  Sex: Male

DRUGS (7)
  1. LUMIGAN 0.01% [Suspect]
     Indication: GLAUCOMA
     Dosage: 1 DROP TO THE RIGHT EYE, AT BEDTIME
     Route: 047
     Dates: start: 201309, end: 20131012
  2. AZOPT [Concomitant]
     Indication: GLAUCOMA
     Dosage: 1 DROP IN EACH EYE, TWICE A DAY
     Route: 047
     Dates: end: 20131012
  3. ASA [Concomitant]
     Dosage: 1 TABLET DAILY
     Route: 048
  4. SIMVASTATIN [Concomitant]
     Indication: BLOOD CHOLESTEROL INCREASED
     Dosage: 20 MG, AT BEDTIME
     Route: 048
  5. LISINOPRIL [Concomitant]
     Indication: HYPERTENSION
     Dosage: 5 MG, DAILY
     Route: 048
  6. GLYBURIDE [Concomitant]
     Indication: DIABETES MELLITUS
     Dosage: 5 MG, TWICE A DAY
     Route: 048
  7. MELOXICAM [Concomitant]
     Indication: ARTHRITIS
     Dosage: 15 MG, DAILY
     Route: 048

REACTIONS (1)
  - Dizziness [Unknown]
